FAERS Safety Report 9250277 (Version 1)
Quarter: 2013Q2

REPORT INFORMATION
  Report Type: Spontaneous
  Country: US (occurrence: US)
  Receive Date: 20130424
  Receipt Date: 20130424
  Transmission Date: 20140414
  Serious: No
  Sender: FDA-Public Use
  Company Number: US-009507513-1304USA011935

PATIENT
  Age: 39 Year
  Sex: Male

DRUGS (1)
  1. ASMANEX TWISTHALER [Suspect]
     Dosage: 1 DF, QD, 110 MCG, 1 STANDARD DOSE OF 30, 1 PUFF
     Route: 055
     Dates: start: 20130408

REACTIONS (3)
  - Drug dose omission [Unknown]
  - Product quality issue [Unknown]
  - Accidental exposure to product [Unknown]
